FAERS Safety Report 12599171 (Version 1)
Quarter: 2016Q3

REPORT INFORMATION
  Report Type: Spontaneous
  Country: US (occurrence: None)
  Receive Date: 20160726
  Receipt Date: 20160726
  Transmission Date: 20161109
  Serious: Yes (Hospitalization)
  Sender: FDA-Public Use
  Company Number: None

PATIENT
  Age: 26 Year
  Sex: Female
  Weight: 41 kg

DRUGS (1)
  1. LEVOFLOXACIN CLARIS LIFESCIENCES [Suspect]
     Active Substance: LEVOFLOXACIN
     Indication: GASTROENTERITIS
     Route: 042

REACTIONS (4)
  - Ischaemic stroke [None]
  - Hypoglycaemia [None]
  - Metabolic encephalopathy [None]
  - Hemiparesis [None]

NARRATIVE: CASE EVENT DATE: 20160621
